FAERS Safety Report 24218474 (Version 1)
Quarter: 2024Q3

REPORT INFORMATION
  Report Type: Report from Study
  Country: BE (occurrence: BE)
  Receive Date: 20240816
  Receipt Date: 20240816
  Transmission Date: 20241016
  Serious: Yes (Other)
  Sender: ABBVIE
  Company Number: BE-ABBVIE-5878340

PATIENT
  Age: 36 Year
  Sex: Male

DRUGS (1)
  1. HUMIRA [Suspect]
     Active Substance: ADALIMUMAB
     Indication: Colitis ulcerative
     Route: 058
     Dates: start: 20240806

REACTIONS (4)
  - Loss of consciousness [Recovered/Resolved]
  - Nervousness [Unknown]
  - Pallor [Unknown]
  - Presyncope [Unknown]

NARRATIVE: CASE EVENT DATE: 20240806
